FAERS Safety Report 7232599-4 (Version None)
Quarter: 2011Q1

REPORT INFORMATION
  Report Type: 
  Country: None (occurrence: None)
  Receive Date: 20110119
  Receipt Date: 20110107
  Transmission Date: 20110831
  Serious: Yes (Hospitalization, Other)
  Sender: FDA-Public Use
  Company Number: PHHY2011FR01529

PATIENT
  Age: 96 Year
  Sex: Female

DRUGS (1)
  1. VOLTAREN [Suspect]
     Indication: PAIN
     Dosage: 75 MG/3 ML, ONE INJECTION PER DAY
     Dates: start: 20101129, end: 20101201

REACTIONS (10)
  - CONFUSIONAL STATE [None]
  - DYSPHAGIA [None]
  - MUTISM [None]
  - FEEDING DISORDER [None]
  - CREATININE RENAL CLEARANCE DECREASED [None]
  - RENAL FAILURE ACUTE [None]
  - BLOOD CREATININE INCREASED [None]
  - MYOCLONUS [None]
  - STATUS EPILEPTICUS [None]
  - LABORATORY TEST ABNORMAL [None]
